FAERS Safety Report 7646813-4 (Version None)
Quarter: 2011Q3

REPORT INFORMATION
  Report Type: 
  Country: None (occurrence: None)
  Receive Date: 20110725
  Receipt Date: 20110711
  Transmission Date: 20111222
  Serious: Yes (Hospitalization)
  Sender: FDA-Public Use
  Company Number: 1000022173

PATIENT
  Age: 16 Year
  Sex: Female

DRUGS (3)
  1. INDOMETHACIN [Suspect]
     Indication: HEADACHE
     Dosage: 300 MG (100 MG, 3 IN 1 D)
  2. INDOMETHACIN [Suspect]
     Indication: HEADACHE
     Dosage: LOW DOSE
  3. INDOMETHACIN [Suspect]
     Indication: HEADACHE
     Dosage: LOW DOSE

REACTIONS (5)
  - PALPITATIONS [None]
  - TREATMENT FAILURE [None]
  - CSF PRESSURE INCREASED [None]
  - MYOCLONUS [None]
  - PAIN [None]
